FAERS Safety Report 23613073 (Version 1)
Quarter: 2024Q1

REPORT INFORMATION
  Report Type: Report from Study
  Country: US (occurrence: US)
  Receive Date: 20240308
  Receipt Date: 20240308
  Transmission Date: 20240410
  Serious: Yes (Other)
  Sender: FDA-Public Use
  Company Number: US-JAZZ-2021-US-024696

PATIENT
  Sex: Female

DRUGS (30)
  1. XYREM [Suspect]
     Active Substance: SODIUM OXYBATE
     Indication: Narcolepsy
     Dosage: 2.5 GRAM FIRST DOSE
     Route: 048
     Dates: start: 200907, end: 201008
  2. XYREM [Suspect]
     Active Substance: SODIUM OXYBATE
     Indication: Cataplexy
     Dosage: 1.5 GRAM SECOND DOSE
     Route: 048
     Dates: start: 200907, end: 201008
  3. XYREM [Suspect]
     Active Substance: SODIUM OXYBATE
     Indication: Somnolence
     Dosage: DOSE ADJUSTMENT
     Route: 048
     Dates: start: 201008, end: 201510
  4. XYREM [Suspect]
     Active Substance: SODIUM OXYBATE
     Dosage: 3.75 GRAM, BID
     Route: 048
     Dates: start: 201510
  5. ARMODAFINIL [Suspect]
     Active Substance: ARMODAFINIL
     Indication: Product used for unknown indication
     Dosage: 0010
     Dates: start: 20161026
  6. KETOROLAC [Concomitant]
     Active Substance: KETOROLAC TROMETHAMINE
     Dosage: 0000
     Dates: start: 20120101, end: 2019
  7. ACETAMINOPHEN\DICHLORALPHENAZONE\ISOMETHEPTENE MUCATE [Concomitant]
     Active Substance: ACETAMINOPHEN\DICHLORALPHENAZONE\ISOMETHEPTENE MUCATE
     Dosage: 0000
     Dates: start: 20080101
  8. PROTRIPTYLINE [Concomitant]
     Active Substance: PROTRIPTYLINE
     Dosage: 0000
     Dates: start: 20100101
  9. SIMVASTATIN [Concomitant]
     Active Substance: SIMVASTATIN
     Dosage: 0000
     Dates: start: 20130618
  10. MAGNESIUM CARBONATE [Concomitant]
     Active Substance: MAGNESIUM CARBONATE
     Dosage: 0000
     Dates: start: 20130618
  11. VITAMIN B2 [Concomitant]
     Active Substance: RIBOFLAVIN
     Dosage: 0000
     Dates: start: 20130618
  12. RELPAX [Concomitant]
     Active Substance: ELETRIPTAN HYDROBROMIDE
     Dosage: 0000
     Dates: start: 20130618
  13. VALTREX [Concomitant]
     Active Substance: VALACYCLOVIR HYDROCHLORIDE
     Dosage: 0000
     Dates: start: 20130618
  14. BOTOX COSMETIC [Concomitant]
     Active Substance: ONABOTULINUMTOXINA
     Dosage: 0000
     Dates: start: 20151007
  15. FROVA [Concomitant]
     Active Substance: FROVATRIPTAN SUCCINATE
     Dosage: 0000
     Dates: start: 20151007
  16. FIORICET WITH CODEINE [Concomitant]
     Active Substance: ACETAMINOPHEN\BUTALBITAL\CAFFEINE\CODEINE PHOSPHATE
     Dosage: 0000
     Dates: start: 20151007
  17. OXYMETAZOLINE HYDROCHLORIDE [Concomitant]
     Active Substance: OXYMETAZOLINE HYDROCHLORIDE
     Dosage: 0000
     Dates: start: 20151007
  18. FISH OIL\OMEGA-3 FATTY ACIDS [Concomitant]
     Active Substance: FISH OIL\OMEGA-3 FATTY ACIDS
     Dosage: 0000
     Dates: start: 20151007
  19. VITAMINS [Concomitant]
     Active Substance: VITAMINS
     Dosage: 0000
     Dates: start: 20151007
  20. NASACORT [Concomitant]
     Active Substance: TRIAMCINOLONE ACETONIDE
     Dosage: 0000
     Dates: start: 20151007
  21. ALCOHOL [Concomitant]
     Active Substance: ALCOHOL
     Dosage: 0000
     Dates: start: 20151007
  22. ACETAMINOPHEN\ASPIRIN\CAFFEINE\CODEINE PHOSPHATE [Concomitant]
     Active Substance: ACETAMINOPHEN\ASPIRIN\CAFFEINE\CODEINE PHOSPHATE
     Dosage: 0000
     Dates: start: 20171107
  23. LUTEIN + [Concomitant]
     Dosage: 0000
     Dates: start: 20171107
  24. ZOCOR [Concomitant]
     Active Substance: SIMVASTATIN
     Dosage: 0010
     Dates: start: 20181126
  25. XIIDRA [Concomitant]
     Active Substance: LIFITEGRAST
     Dosage: 0000
     Dates: start: 20191121
  26. SINGULAIR [Concomitant]
     Active Substance: MONTELUKAST SODIUM
     Dosage: 0000
     Dates: start: 20191121
  27. DICYCLOMINE HYDROCHLORIDE [Concomitant]
     Active Substance: DICYCLOMINE HYDROCHLORIDE
     Dosage: 0000
     Dates: start: 20201215
  28. GARLIC (ODOURLESS) [Concomitant]
     Dosage: 0000
     Dates: start: 20201215
  29. ONDANSETRON HYDROCHLORIDE [Concomitant]
     Active Substance: ONDANSETRON HYDROCHLORIDE
     Dosage: 0000
     Dates: start: 20201215
  30. AMITRIPTYLINE HYDROCHLORIDE [Concomitant]
     Active Substance: AMITRIPTYLINE HYDROCHLORIDE
     Indication: Product used for unknown indication
     Dosage: UNK
     Dates: start: 20231029

REACTIONS (4)
  - Clostridium difficile infection [Unknown]
  - Arthritis [Unknown]
  - Dry mouth [Unknown]
  - Abdominal discomfort [Unknown]
